FAERS Safety Report 6441895-X (Version None)
Quarter: 2009Q4

REPORT INFORMATION
  Report Type: 
  Country: None (occurrence: None)
  Receive Date: 20091112
  Receipt Date: 20091101
  Transmission Date: 20100525
  Serious: Yes (Hospitalization)
  Sender: FDA-Public Use
  Company Number: 232567J09USA

PATIENT
  Age: 48 Year
  Sex: Female

DRUGS (4)
  1. REBIF [Suspect]
     Indication: MULTIPLE SCLEROSIS
     Dosage: 44 MCG, 3 IN 1 WEEKS, SUBCUTANEOUS
     Route: 058
     Dates: start: 20081008
  2. PRILOSEC [Concomitant]
  3. VITAMIN D [Concomitant]
  4. FISH OIL (FISH OIL) [Concomitant]

REACTIONS (5)
  - BLOOD HUMAN CHORIONIC GONADOTROPIN INCREASED [None]
  - CONDITION AGGRAVATED [None]
  - HYSTERECTOMY [None]
  - OVARIAN CYST [None]
  - VAGINAL HAEMORRHAGE [None]
